APPROVED DRUG PRODUCT: LIDOCAINE
Active Ingredient: LIDOCAINE
Strength: 5%
Dosage Form/Route: OINTMENT;TOPICAL
Application: A211469 | Product #001 | TE Code: BX
Applicant: ALEMBIC PHARMACEUTICALS LTD
Approved: Nov 23, 2018 | RLD: No | RS: No | Type: RX